FAERS Safety Report 6291097-5 (Version None)
Quarter: 2009Q3

REPORT INFORMATION
  Report Type: 
  Country: None (occurrence: None)
  Receive Date: 20090730
  Receipt Date: 20090721
  Transmission Date: 20100115
  Serious: Yes (Other)
  Sender: FDA-Public Use
  Company Number: A0793990A

PATIENT
  Age: 46 Year
  Sex: Female

DRUGS (3)
  1. TYKERB [Suspect]
     Dosage: 1250MG CYCLIC
     Dates: start: 20080912
  2. CAPECITABINE [Suspect]
     Dosage: 2000MGM2 CYCLIC
     Dates: start: 20080912
  3. ZOMETA [Concomitant]
     Indication: BONE PAIN
     Dosage: 4MG SEE DOSAGE TEXT
     Dates: start: 20070501

REACTIONS (9)
  - ASTHENIA [None]
  - BALANCE DISORDER [None]
  - BONE PAIN [None]
  - BRAIN CANCER METASTATIC [None]
  - DIARRHOEA [None]
  - HEADACHE [None]
  - HYPERTENSION [None]
  - OEDEMA [None]
  - PAIN [None]
